FAERS Safety Report 5276666-3 (Version None)
Quarter: 2007Q1

REPORT INFORMATION
  Report Type: 
  Country: None (occurrence: None)
  Receive Date: 20070327
  Receipt Date: 20070314
  Transmission Date: 20070707
  Serious: Yes (Death)
  Sender: FDA-Public Use
  Company Number: US-NOVOPROD-257753

PATIENT
  Age: 83 Year
  Sex: Female

DRUGS (1)
  1. NOVOSEVEN [Suspect]
     Indication: CEREBRAL HAEMORRHAGE
     Dosage: 80 UG, SINGLE
     Route: 042
     Dates: start: 20040811

REACTIONS (1)
  - MYOCARDIAL INFARCTION [None]
